FAERS Safety Report 5273309-X (Version None)
Quarter: 2007Q1

REPORT INFORMATION
  Report Type: 
  Country: None (occurrence: None)
  Receive Date: 20070319
  Receipt Date: 20070308
  Transmission Date: 20070707
  Serious: Yes (Hospitalization)
  Sender: FDA-Public Use
  Company Number: FEI2007-0385

PATIENT
  Age: 29 Year
  Sex: Female

DRUGS (1)
  1. INTRAUTERINE COPPER CONTRACEPTIVE [Suspect]
     Indication: CONTRACEPTION
     Dosage: NA, NA, INTRA-UTERINE
     Route: 015

REACTIONS (2)
  - ABSCESS [None]
  - IUD MIGRATION [None]
